FAERS Safety Report 8848012 (Version 2)
Quarter: 2012Q4

REPORT INFORMATION
  Report Type: 
  Country: DK (occurrence: DK)
  Receive Date: 20121018
  Receipt Date: 20121206
  Transmission Date: 20130627
  Serious: Yes (Hospitalization, Disabling)
  Sender: FDA-Public Use
  Company Number: PHHY2012DK092458

PATIENT
  Age: 48 Year
  Sex: Male

DRUGS (5)
  1. CERTICAN [Suspect]
     Indication: PROPHYLAXIS AGAINST TRANSPLANT REJECTION
     Dosage: 1.25 mg, (0.75 + 0.50 mg daily)
     Route: 048
     Dates: start: 20100607, end: 20120815
  2. TACROLIMUS [Concomitant]
     Indication: IMMUNOSUPPRESSION
  3. DIURETICS [Concomitant]
  4. IMMUNOSUPPRESSANTS [Concomitant]
  5. VITAMIN D3 [Concomitant]

REACTIONS (3)
  - Nephrotic syndrome [Recovered/Resolved with Sequelae]
  - Glomerulonephritis [Recovered/Resolved with Sequelae]
  - Oedema [Unknown]
